FAERS Safety Report 23097667 (Version 1)
Quarter: 2023Q4

REPORT INFORMATION
  Report Type: Report from Study
  Country: BG (occurrence: BG)
  Receive Date: 20231023
  Receipt Date: 20231023
  Transmission Date: 20240109
  Serious: Yes (Hospitalization)
  Sender: FDA-Public Use
  Company Number: BG-ALNYLAM PHARMACEUTICALS, INC.-ALN-2023-005566

PATIENT

DRUGS (1)
  1. ONPATTRO [Suspect]
     Active Substance: PATISIRAN SODIUM
     Indication: Hereditary neuropathic amyloidosis
     Dosage: UNK, 3 VIALS FOR 42 DAYS
     Route: 042
     Dates: start: 20220518

REACTIONS (3)
  - Renal failure [Not Recovered/Not Resolved]
  - Fluid retention [Not Recovered/Not Resolved]
  - Therapy interrupted [Not Recovered/Not Resolved]

NARRATIVE: CASE EVENT DATE: 20231015
